FAERS Safety Report 17293019 (Version 5)
Quarter: 2023Q1

REPORT INFORMATION
  Report Type: Spontaneous
  Country: US (occurrence: US)
  Receive Date: 20200121
  Receipt Date: 20230105
  Transmission Date: 20230417
  Serious: No
  Sender: FDA-Public Use
  Company Number: US-PFIZER INC-2019478378

PATIENT
  Age: 53 Year
  Sex: Male
  Weight: 105 kg

DRUGS (6)
  1. INLYTA [Suspect]
     Active Substance: AXITINIB
     Indication: Neoplasm malignant
     Dosage: 7 MG, 2X/DAY
     Route: 048
  2. INLYTA [Suspect]
     Active Substance: AXITINIB
     Indication: Renal cancer
     Dosage: 5 MG, 2X/DAY
     Route: 048
     Dates: start: 201910
  3. INLYTA [Suspect]
     Active Substance: AXITINIB
     Dosage: 10 MG, 2X/DAY
     Dates: start: 20200103, end: 202001
  4. INLYTA [Suspect]
     Active Substance: AXITINIB
     Dosage: 2 MG, 2X/DAY
     Route: 048
  5. INLYTA [Suspect]
     Active Substance: AXITINIB
     Dosage: 1 MG
  6. INLYTA [Suspect]
     Active Substance: AXITINIB
     Dosage: 5 MG

REACTIONS (4)
  - Product dose omission issue [Unknown]
  - Treatment noncompliance [Unknown]
  - Abdominal pain upper [Recovered/Resolved]
  - Abdominal discomfort [Recovered/Resolved]

NARRATIVE: CASE EVENT DATE: 20200106
